FAERS Safety Report 17354185 (Version 1)
Quarter: 2020Q1

REPORT INFORMATION
  Report Type: Spontaneous
  Country: DE (occurrence: DE)
  Receive Date: 20200131
  Receipt Date: 20200131
  Transmission Date: 20200409
  Serious: Yes (Hospitalization)
  Sender: FDA-Public Use
  Company Number: DE-ASTRAZENECA-2020SE13056

PATIENT
  Sex: Female

DRUGS (2)
  1. QUETIAPINE. [Suspect]
     Active Substance: QUETIAPINE
     Route: 048
     Dates: start: 201907, end: 201907
  2. IBUFLAM (IBUPROFEN) [Suspect]
     Active Substance: IBUPROFEN
     Indication: PAIN
     Route: 065
     Dates: start: 2013, end: 20191214

REACTIONS (11)
  - Hyperhidrosis [Not Recovered/Not Resolved]
  - Neck pain [Not Recovered/Not Resolved]
  - Nausea [Not Recovered/Not Resolved]
  - Back pain [Not Recovered/Not Resolved]
  - Influenza like illness [Not Recovered/Not Resolved]
  - Feeling cold [Not Recovered/Not Resolved]
  - Pyrexia [Not Recovered/Not Resolved]
  - Drug ineffective [Not Recovered/Not Resolved]
  - Meningism [Not Recovered/Not Resolved]
  - Respiratory disorder [Not Recovered/Not Resolved]
  - Fatigue [Not Recovered/Not Resolved]

NARRATIVE: CASE EVENT DATE: 201906
